FAERS Safety Report 7814688-6 (Version None)
Quarter: 2011Q4

REPORT INFORMATION
  Report Type: 
  Country: None (occurrence: None)
  Receive Date: 20111014
  Receipt Date: 20111012
  Transmission Date: 20120403
  Serious: No
  Sender: FDA-Public Use
  Company Number: JP-PFIZER INC-2011236831

PATIENT
  Age: 10 Year
  Sex: Female

DRUGS (3)
  1. THEO-DUR [Suspect]
     Indication: BRONCHITIS
     Route: 048
  2. MINOCYCLINE HCL [Concomitant]
     Indication: PNEUMONIA MYCOPLASMAL
     Dosage: UNK
     Route: 041
  3. ZITHROMAX [Suspect]
     Indication: PNEUMONIA MYCOPLASMAL
     Dosage: 250 MG, 1X/DAY
     Route: 048

REACTIONS (1)
  - HYPOAESTHESIA [None]
